FAERS Safety Report 4953255-9 (Version None)
Quarter: 2006Q1

REPORT INFORMATION
  Report Type: 
  Country: None (occurrence: None)
  Receive Date: 20060324
  Receipt Date: 20050728
  Transmission Date: 20060701
  Serious: Yes (Hospitalization, Disabling)
  Sender: FDA-Public Use
  Company Number: US-MERCK-0508USA00810

PATIENT
  Age: 49 Year
  Sex: Male
  Weight: 114 kg

DRUGS (13)
  1. VIOXX [Suspect]
     Indication: SHOULDER PAIN
     Route: 048
     Dates: start: 20031205, end: 20040916
  2. VIOXX [Suspect]
     Indication: NECK PAIN
     Route: 048
     Dates: start: 20031205, end: 20040916
  3. ZESTORETIC [Concomitant]
     Route: 065
  4. VICODIN [Concomitant]
     Route: 065
  5. LIPITOR [Concomitant]
     Route: 065
  6. LISINOPRIL [Concomitant]
     Route: 065
  7. TOPROL-XL [Concomitant]
     Route: 065
  8. PLAVIX [Concomitant]
     Route: 065
  9. PROTONIX [Concomitant]
     Route: 065
  10. ASPIRIN [Concomitant]
     Route: 065
  11. PENICILLIN (UNSPECIFIED) [Concomitant]
     Route: 065
  12. WELLBUTRIN [Concomitant]
     Route: 065
  13. EFFEXOR [Concomitant]
     Route: 065

REACTIONS (12)
  - ACUTE MYOCARDIAL INFARCTION [None]
  - CARDIAC DISORDER [None]
  - CARDIAC MURMUR [None]
  - CARPAL TUNNEL SYNDROME [None]
  - CORONARY ARTERY DISEASE [None]
  - DIZZINESS [None]
  - HYPOTENSION [None]
  - INSOMNIA [None]
  - INTERVERTEBRAL DISC DEGENERATION [None]
  - OSTEOARTHRITIS [None]
  - PAIN [None]
  - VERTIGO [None]
